FAERS Safety Report 9630650 (Version 1)
Quarter: 2013Q4

REPORT INFORMATION
  Report Type: Spontaneous
  Country: US (occurrence: None)
  Receive Date: 20131015
  Receipt Date: 20131015
  Transmission Date: 20140711
  Serious: Yes (Hospitalization)
  Sender: FDA-Public Use
  Company Number: QSC-2013-0339

PATIENT
  Age: 54 Year
  Sex: Female
  Weight: 112.5 kg

DRUGS (10)
  1. H.P. ACTHAR [Suspect]
     Indication: PROTEINURIA
     Dosage: 40 UNITS, QW, SUBCUTANEOUS
     Route: 058
     Dates: start: 20120914
  2. LASIX (FUROSEMIDE) [Concomitant]
  3. COZAAR (LOSARTAN POTASSIUM) (50 MILLIGRAM, TABLETS) (LOSARTAN POTASSIUM) [Concomitant]
  4. CARDURA (DOXAZOSIN MESILATE) [Concomitant]
  5. CARVEDILOL (CARVEDILOL) [Concomitant]
  6. LANTUS (INSULIN GLARGINE) [Concomitant]
  7. NOVOLOG (INSULIN ASPART) [Concomitant]
  8. LIPITOR (ATORVASTIN CALCIUM) [Concomitant]
  9. NEXIUM I.V. [Concomitant]
  10. VICTOZA (LIRAGLUTIDE) [Concomitant]

REACTIONS (8)
  - Malignant hypertension [None]
  - Cardiac failure congestive [None]
  - Renal failure acute [None]
  - Anaemia of chronic disease [None]
  - Pericardial effusion [None]
  - Treatment noncompliance [None]
  - Blood glucose increased [None]
  - Local swelling [None]
